FAERS Safety Report 8567882-3 (Version None)
Quarter: 2012Q3

REPORT INFORMATION
  Report Type: 
  Country: None (occurrence: None)
  Receive Date: 20120803
  Receipt Date: 20120726
  Transmission Date: 20120928
  Serious: Yes (Other)
  Sender: FDA-Public Use
  Company Number: DK-BAXTER-2012BAX013429

PATIENT
  Sex: Male

DRUGS (2)
  1. GAMMAGARD S/D [Suspect]
     Indication: NARCOLEPSY
     Route: 017
     Dates: start: 20110214
  2. GAMMAGARD S/D [Suspect]
     Indication: OFF LABEL USE

REACTIONS (3)
  - DRUG INEFFECTIVE [None]
  - HEADACHE [None]
  - WHITE BLOOD CELL COUNT INCREASED [None]
